FAERS Safety Report 25137145 (Version 1)
Quarter: 2025Q1

REPORT INFORMATION
  Report Type: Report from Study
  Country: US (occurrence: US)
  Receive Date: 20250329
  Receipt Date: 20250329
  Transmission Date: 20250408
  Serious: Yes (Hospitalization)
  Sender: ABBVIE
  Company Number: US-ABBVIE-6198292

PATIENT
  Sex: Male

DRUGS (1)
  1. IMBRUVICA [Suspect]
     Active Substance: IBRUTINIB
     Indication: Product used for unknown indication
     Dosage: DISCONTINUED FOR A WEEK
     Route: 048

REACTIONS (5)
  - Cholelithiasis [Unknown]
  - Dyspepsia [Unknown]
  - Migraine [Unknown]
  - Pain [Unknown]
  - Depression [Unknown]
